FAERS Safety Report 9496223 (Version 1)
Quarter: 2013Q3

REPORT INFORMATION
  Report Type: Spontaneous
  Country: US (occurrence: US)
  Receive Date: 20130904
  Receipt Date: 20130904
  Transmission Date: 20140515
  Serious: No
  Sender: FDA-Public Use
  Company Number: US-BAYER-2013-105408

PATIENT
  Sex: Female

DRUGS (17)
  1. BETASERON [Suspect]
     Indication: MULTIPLE SCLEROSIS
     Dosage: 0.25 MG, QOD
     Route: 058
     Dates: start: 2003, end: 201206
  2. BETASERON [Suspect]
     Indication: MULTIPLE SCLEROSIS
     Dosage: 0.25 MG, QOD
     Route: 058
     Dates: start: 201306
  3. BETASERON [Suspect]
     Indication: MULTIPLE SCLEROSIS
     Dosage: 0.125 MG, QOD
     Route: 058
     Dates: start: 201306
  4. ROPINIROLE [Concomitant]
     Dosage: 5 MG, UNK
  5. VICODIN [Concomitant]
     Dosage: 300 MG, UNK
  6. TRAMADOL [Concomitant]
     Dosage: 50 MG, UNK
  7. BACLOFEN [Concomitant]
     Dosage: 20 MG, UNK
  8. TREXIMET [Concomitant]
     Dosage: 500 MG, UNK
  9. VITAMIN B12 [Concomitant]
     Dosage: 500 MCG, UNK
  10. LEVOTHYROXIN [Concomitant]
     Dosage: 75 MG, UNK
  11. PROAIR HFA [Concomitant]
  12. FERROUS SULPHATE [Concomitant]
     Dosage: UNK
  13. PRENATAL [Concomitant]
     Dosage: UNK
  14. VITAMIN B3 [Concomitant]
     Dosage: 100 MG, UNK
  15. QVAR [Concomitant]
     Dosage: 40 MCG
  16. VITAMIN B6 [Concomitant]
     Dosage: 50 MG, UNK
  17. TOPIRAMATE [Concomitant]
     Dosage: 25 MG, UNK

REACTIONS (10)
  - Fall [Recovered/Resolved]
  - Hypoaesthesia [Unknown]
  - Burning sensation [Unknown]
  - Musculoskeletal pain [Unknown]
  - Headache [Unknown]
  - Pain [Unknown]
  - Muscle twitching [Unknown]
  - Hypoaesthesia [Unknown]
  - Hypoaesthesia [Recovered/Resolved]
  - Fatigue [None]
